FAERS Safety Report 20053982 (Version 1)
Quarter: 2021Q4

REPORT INFORMATION
  Report Type: Spontaneous
  Country: US (occurrence: None)
  Receive Date: 20211110
  Receipt Date: 20211110
  Transmission Date: 20220303
  Serious: Yes (Other)
  Sender: FDA-Public Use
  Company Number: None

PATIENT
  Sex: Female

DRUGS (6)
  1. GLATIRAMER [Suspect]
     Active Substance: GLATIRAMER
     Indication: Multiple sclerosis
     Dosage: OTHER FREQUENCY : 3X WEEK;?
     Route: 058
     Dates: start: 20190927
  2. AMANTADINE [Concomitant]
     Active Substance: AMANTADINE
  3. BACLOFEN [Concomitant]
     Active Substance: BACLOFEN
  4. COVID 19 TEST KIT [Concomitant]
  5. PAROXETINE [Concomitant]
     Active Substance: PAROXETINE
  6. VITAMIN D3 [Concomitant]
     Active Substance: CHOLECALCIFEROL

REACTIONS (3)
  - Multiple sclerosis relapse [None]
  - Blindness unilateral [None]
  - Therapy interrupted [None]
